FAERS Safety Report 4715308-X (Version None)
Quarter: 2005Q3

REPORT INFORMATION
  Report Type: 
  Country: None (occurrence: None)
  Receive Date: 20050715
  Receipt Date: 20050629
  Transmission Date: 20060218
  Serious: No
  Sender: FDA-Public Use
  Company Number: JP-ABBOTT-05P-087-0304623-00

PATIENT
  Sex: Female
  Weight: 8.4 kg

DRUGS (2)
  1. CEFZON FINE GRANULE [Suspect]
     Indication: UPPER RESPIRATORY TRACT INFLAMMATION
     Route: 048
     Dates: start: 20040726, end: 20040801
  2. CEFZON FINE GRANULE [Suspect]
     Route: 048
     Dates: start: 20040605, end: 20040609

REACTIONS (3)
  - DEPRESSED LEVEL OF CONSCIOUSNESS [None]
  - NYSTAGMUS [None]
  - VISION BLURRED [None]
